FAERS Safety Report 22763741 (Version 2)
Quarter: 2024Q1

REPORT INFORMATION
  Report Type: Report from Study
  Country: DE (occurrence: DE)
  Receive Date: 20230730
  Receipt Date: 20240221
  Transmission Date: 20240409
  Serious: Yes (Other)
  Sender: FDA-Public Use
  Company Number: DE-CELLTRION HEALTHCARE HUNGARY KFT-2023DE000649

PATIENT
  Age: 42 Year
  Sex: Female

DRUGS (16)
  1. DOXORUBICIN [Suspect]
     Active Substance: DOXORUBICIN
     Indication: Grey zone lymphoma
     Dosage: UNK (6 CYCLES)
     Route: 065
  2. MELPHALAN [Suspect]
     Active Substance: MELPHALAN
     Indication: Grey zone lymphoma
     Dosage: UNK
     Route: 065
  3. CARMUSTINE [Suspect]
     Active Substance: CARMUSTINE
     Indication: Grey zone lymphoma
     Dosage: UNK, BEAM REGIMEN
     Route: 065
  4. CARBOPLATIN [Suspect]
     Active Substance: CARBOPLATIN
     Indication: Grey zone lymphoma
     Dosage: R-ICE REGIMEN; 2 CYCLES WERE GIVEN
     Route: 065
  5. CISPLATIN [Suspect]
     Active Substance: CISPLATIN
     Indication: Grey zone lymphoma
     Dosage: R-DHAP REGIMEN; 2 CYCLES WERE GIVEN
     Route: 065
  6. CYCLOPHOSPHAMIDE [Suspect]
     Active Substance: CYCLOPHOSPHAMIDE
     Indication: Grey zone lymphoma
     Dosage: UNK (6 CYCLES)
     Route: 065
  7. CYTARABINE [Suspect]
     Active Substance: CYTARABINE
     Indication: Grey zone lymphoma
     Dosage: R-DHAP REGIMEN; 2 CYCLES WERE GIVEN
     Route: 065
  8. DEXAMETHASONE [Suspect]
     Active Substance: DEXAMETHASONE
     Indication: Grey zone lymphoma
     Dosage: R-DHAP REGIMEN; 2 CYCLES WERE GIVEN
     Route: 065
  9. ETOPOSIDE [Suspect]
     Active Substance: ETOPOSIDE
     Indication: Grey zone lymphoma
     Dosage: UNK
     Route: 065
  10. IFOSFAMIDE [Suspect]
     Active Substance: IFOSFAMIDE
     Indication: Grey zone lymphoma
     Dosage: R-ICE REGIMEN; 2 CYCLES WERE GIVEN
     Route: 065
  11. OFATUMUMAB [Suspect]
     Active Substance: OFATUMUMAB
     Indication: Grey zone lymphoma
     Dosage: UNK
     Route: 065
  12. PREDNISOLONE [Suspect]
     Active Substance: PREDNISOLONE
     Indication: Grey zone lymphoma
     Dosage: UNK (6 CYCLES)
     Route: 065
  13. RIBAVIRIN [Suspect]
     Active Substance: RIBAVIRIN
     Indication: Hepatitis E
     Dosage: 800 MILLIGRAM, ONCE A DAY
     Route: 048
  14. RITUXIMAB [Suspect]
     Active Substance: RITUXIMAB
     Indication: Grey zone lymphoma
     Dosage: UNK (6 CYCLES)
     Route: 065
  15. VINCRISTINE [Suspect]
     Active Substance: VINCRISTINE
     Indication: Grey zone lymphoma
     Dosage: UNK (6 CYCLES)
     Route: 065
  16. R DHAP [Concomitant]
     Indication: Product used for unknown indication
     Dosage: UNK, 2 CYCLES
     Route: 065

REACTIONS (5)
  - Hepatitis E [Unknown]
  - Cytopenia [Unknown]
  - Therapy partial responder [Unknown]
  - Product use issue [Unknown]
  - Off label use [Unknown]

NARRATIVE: CASE EVENT DATE: 20220427
